FAERS Safety Report 13699246 (Version 1)
Quarter: 2017Q2

REPORT INFORMATION
  Report Type: Spontaneous
  Country: TR (occurrence: TR)
  Receive Date: 20170628
  Receipt Date: 20170628
  Transmission Date: 20170830
  Serious: Yes (Hospitalization)
  Sender: FDA-Public Use
  Company Number: TR-IMPAX LABORATORIES, INC-2017-IPXL-01846

PATIENT
  Age: 57 Year
  Sex: Female

DRUGS (2)
  1. METFORMIN HYDROCHLORIDE ER [Suspect]
     Active Substance: METFORMIN HYDROCHLORIDE
     Indication: DIABETES MELLITUS
     Dosage: UNK
     Route: 065
  2. SULFASALAZINE. [Concomitant]
     Active Substance: SULFASALAZINE
     Indication: RHEUMATOID ARTHRITIS
     Dosage: UNK
     Route: 065

REACTIONS (7)
  - Myalgia [Recovered/Resolved]
  - Drug ineffective [Unknown]
  - Periarthritis [Recovered/Resolved]
  - Carpal tunnel syndrome [Recovered/Resolved]
  - Exostosis [Recovered/Resolved]
  - Vitamin D deficiency [Recovered/Resolved]
  - Diabetic cheiroarthropathy [Recovered/Resolved]
